FAERS Safety Report 9120085 (Version 1)
Quarter: 2013Q1

REPORT INFORMATION
  Report Type: Spontaneous
  Country: FR (occurrence: FR)
  Receive Date: 20130226
  Receipt Date: 20130226
  Transmission Date: 20140127
  Serious: Yes (Hospitalization)
  Sender: FDA-Public Use
  Company Number: FR-SANOFI-AVENTIS-2013SA016377

PATIENT
  Age: 71 Year
  Sex: Male

DRUGS (12)
  1. PLAVIX [Suspect]
     Indication: PRODUCT USED FOR UNKNOWN INDICATION
     Route: 048
     Dates: start: 201207, end: 20130124
  2. PRADAXA [Suspect]
     Indication: PRODUCT USED FOR UNKNOWN INDICATION
     Route: 048
     Dates: start: 20120711
  3. PRADAXA [Suspect]
     Indication: PRODUCT USED FOR UNKNOWN INDICATION
     Route: 048
     Dates: end: 20121107
  4. TRIATEC [Concomitant]
     Route: 048
     Dates: start: 201207
  5. CRESTOR [Concomitant]
     Route: 048
     Dates: start: 201207
  6. CORDARONE [Concomitant]
     Route: 048
     Dates: start: 201207, end: 20121019
  7. IMOVANE [Concomitant]
     Route: 048
     Dates: start: 201207
  8. BISOPROLOL [Concomitant]
     Route: 048
     Dates: start: 201207
  9. FUROSEMIDE [Concomitant]
     Route: 048
     Dates: start: 201207
  10. ATROVENT [Concomitant]
     Route: 048
     Dates: start: 201207
  11. VENTOLINE [Concomitant]
     Route: 048
     Dates: start: 201207
  12. INEXIUM [Concomitant]
     Route: 048
     Dates: start: 201207

REACTIONS (2)
  - Atrial thrombosis [Recovered/Resolved]
  - Drug ineffective [Unknown]
